FAERS Safety Report 6853416-8 (Version None)
Quarter: 2010Q3

REPORT INFORMATION
  Report Type: 
  Country: None (occurrence: None)
  Receive Date: 20100717
  Receipt Date: 20071207
  Transmission Date: 20110219
  Serious: No
  Sender: FDA-Public Use
  Company Number: US-PFIZER INC-2007104857

PATIENT
  Sex: Female
  Weight: 68.9 kg

DRUGS (8)
  1. CHANTIX [Suspect]
     Indication: SMOKING CESSATION THERAPY
     Dates: start: 20071026
  2. TEGRETOL [Concomitant]
  3. BACLOFEN [Concomitant]
  4. CLONAZEPAM [Concomitant]
  5. LEXAPRO [Concomitant]
  6. WELLBUTRIN [Concomitant]
  7. OXYCODONE HCL [Concomitant]
  8. MORPHINE SULFATE [Concomitant]

REACTIONS (3)
  - BLOOD OESTROGEN ABNORMAL [None]
  - DYSPNOEA [None]
  - HYPERTHYROIDISM [None]
